FAERS Safety Report 17939376 (Version 1)
Quarter: 2020Q2

REPORT INFORMATION
  Report Type: Spontaneous
  Country: CN (occurrence: CN)
  Receive Date: 20200624
  Receipt Date: 20200624
  Transmission Date: 20200714
  Serious: Yes (Death, Other)
  Sender: FDA-Public Use
  Company Number: CN-FRESENIUS KABI-FK202006362

PATIENT
  Age: 1 Year
  Sex: Female

DRUGS (3)
  1. DEXAMETHASONE INJECTION (MANUFACTURER UNKNOWN) [Suspect]
     Active Substance: DEXAMETHASONE
     Indication: AUTOIMMUNE NEUROPATHY
     Dosage: UNKNOWN
     Route: 042
  2. IMMUNOGLOBULIN HUMAN NORMAL [Suspect]
     Active Substance: HUMAN IMMUNOGLOBULIN G
     Indication: AUTOIMMUNE NEUROPATHY
     Dosage: UNKNOWN
     Route: 065
  3. METHYLPREDNISOLONE (MANUFACTURER UNKNOWN) [Suspect]
     Active Substance: METHYLPREDNISOLONE
     Indication: AUTOIMMUNE NEUROPATHY
     Dosage: UNKNOWN
     Route: 042

REACTIONS (5)
  - Staphylococcal infection [Unknown]
  - Respiratory arrest [Fatal]
  - Cardiac arrest [Fatal]
  - Klebsiella infection [Unknown]
  - Candida infection [Unknown]
